FAERS Safety Report 17130020 (Version 2)
Quarter: 2020Q1

REPORT INFORMATION
  Report Type: Spontaneous
  Country: US (occurrence: US)
  Receive Date: 20191209
  Receipt Date: 20200107
  Transmission Date: 20200409
  Serious: No
  Sender: FDA-Public Use
  Company Number: US-SA-2019SA339469

PATIENT
  Age: 66 Year
  Sex: Male

DRUGS (1)
  1. PRALUENT [Suspect]
     Active Substance: ALIROCUMAB
     Dosage: 75 MG, QOW
     Route: 058
     Dates: start: 20191017

REACTIONS (4)
  - Abdominal pain upper [Unknown]
  - Muscle tightness [Unknown]
  - Joint stiffness [Unknown]
  - Swelling [Unknown]

NARRATIVE: CASE EVENT DATE: 2019
